FAERS Safety Report 4493938-0 (Version None)
Quarter: 2004Q4

REPORT INFORMATION
  Report Type: 
  Country: None (occurrence: None)
  Receive Date: 20041102
  Receipt Date: 20041102
  Transmission Date: 20050328
  Serious: Yes (Hospitalization)
  Sender: FDA-Public Use
  Company Number: None

PATIENT
  Age: 83 Year
  Weight: 74 kg

DRUGS (2)
  1. WARFARIN SODIUM [Suspect]
     Indication: ATRIAL FIBRILLATION
     Dosage: 2.5 MG Q DAY ORAL
     Route: 048
     Dates: start: 20030401, end: 20041101
  2. ENOXAPARIN SODIUM [Suspect]
     Dosage: 60 MG BID SQ
     Route: 058
     Dates: start: 20040911, end: 20040913

REACTIONS (1)
  - POST PROCEDURAL HAEMORRHAGE [None]
